FAERS Safety Report 5129277-4 (Version None)
Quarter: 2006Q4

REPORT INFORMATION
  Report Type: 
  Country: None (occurrence: None)
  Receive Date: 20061011
  Receipt Date: 20061004
  Transmission Date: 20070319
  Serious: Yes (Death, Life-Threatening)
  Sender: FDA-Public Use
  Company Number: HQWYE880219SEP06

PATIENT
  Age: 77 Year
  Sex: Male

DRUGS (30)
  1. PIPERACILLIN AND TAZOBACTAM [Suspect]
     Indication: PNEUMONIA ASPIRATION
     Dosage: SEE IMAGE
     Route: 041
     Dates: start: 20060905, end: 20060905
  2. PIPERACILLIN AND TAZOBACTAM [Suspect]
     Indication: PNEUMONIA ASPIRATION
     Dosage: SEE IMAGE
     Route: 041
     Dates: start: 20060906, end: 20060907
  3. DORMICUM ^ROCHE:^ (MIDAZOLAM MALEATE, ) [Suspect]
     Indication: SEDATION
     Dosage: SEE IMAGE
     Route: 041
     Dates: start: 20060905, end: 20060905
  4. DORMICUM ^ROCHE:^ (MIDAZOLAM MALEATE, ) [Suspect]
     Indication: SEDATION
     Dosage: SEE IMAGE
     Route: 041
     Dates: start: 20060905, end: 20060905
  5. FAMOTIDINE [Suspect]
     Indication: PROPHYLAXIS AGAINST GASTROINTESTINAL ULCER
     Dosage: 40 MG 1X PER 1 DAY, INTRAVENOUS DRIP
     Route: 041
     Dates: start: 20060906, end: 20060908
  6. MAGCOROL (MAGNESIUM CITRATE, ) [Suspect]
     Indication: ENDOSCOPY
     Dosage: 100 G 1X PER 1 DAY, ORAL
     Route: 048
     Dates: start: 20060905, end: 20060905
  7. MAGCOROL (MAGNESIUM CITRATE, ) [Suspect]
     Indication: PREMEDICATION
     Dosage: 100 G 1X PER 1 DAY, ORAL
     Route: 048
     Dates: start: 20060905, end: 20060905
  8. MIRACLID (URINSATION) [Concomitant]
  9. SOLU-CORTEF [Concomitant]
  10. BUMINATE (ALBUMIN NORMAL HUMAN SERUM) [Concomitant]
  11. SODIUM BICARBONATE [Concomitant]
  12. DOPAMINE HCL [Concomitant]
  13. DOBUTREX [Concomitant]
  14. PITRESSIN (VASOPRESSIN INJECTION) [Concomitant]
  15. BOSMIN (EPINEPHRINE HYDROCHLORIDE) [Concomitant]
  16. ATROPINE SULFATE [Concomitant]
  17. CALCIUM CHLORIDE ANHYDRUS (CALCIUM CHLORIDE ANHYDROUS) [Concomitant]
  18. HETASTARSCH (HETASTARCH) [Concomitant]
  19. POTASSIUM CHLORIDE [Concomitant]
  20. MAGNESIUM CITRATE (MAGNESIUM CITRATE) [Concomitant]
  21. HUMULIN R [Concomitant]
  22. ELASPOL (SIVELESTAT SODIUM) [Concomitant]
  23. HYDROCORTONE (HYDROCORTISONE) [Concomitant]
  24. SOLU-MEDROL [Concomitant]
  25. LEPETAN (BUPRENORPHINE HYDROCHLORIDE) [Concomitant]
  26. ANTITHROMBIN III (ANTITHROMBIN III) [Concomitant]
  27. CALCICOL (CALCIUM GLUCONATE) [Concomitant]
  28. LASIX [Concomitant]
  29. PENTAZOCINE LACTATE [Concomitant]
  30. LACTATED RINGER'S [Concomitant]

REACTIONS (9)
  - ACUTE RESPIRATORY DISTRESS SYNDROME [None]
  - HAEMODIALYSIS [None]
  - MULTI-ORGAN FAILURE [None]
  - PNEUMONIA ASPIRATION [None]
  - PULMONARY HAEMORRHAGE [None]
  - PURPURA [None]
  - RHABDOMYOLYSIS [None]
  - SEPTIC SHOCK [None]
  - TOXIC EPIDERMAL NECROLYSIS [None]
